FAERS Safety Report 13131789 (Version 1)
Quarter: 2017Q1

REPORT INFORMATION
  Report Type: Not Available
  Country: US (occurrence: US)
  Receive Date: 20170119
  Receipt Date: 20170119
  Transmission Date: 20170428
  Serious: No
  Sender: FDA-Public Use
  Company Number: US-ANIPHARMA-2017-US-000420

PATIENT
  Age: 75 Year
  Sex: Female
  Weight: 64.41 kg

DRUGS (2)
  1. PROPAFENONE HYDROCHLORIDE TABLETS [Suspect]
     Active Substance: PROPAFENONE HYDROCHLORIDE
     Dosage: 1 TABLET (225MG) ONCE
     Route: 048
     Dates: start: 20170113
  2. ELIQUIS [Suspect]
     Active Substance: APIXABAN
     Dosage: 1 TABLET ONCE
     Route: 048
     Dates: start: 20170113

REACTIONS (1)
  - Accidental exposure to product [Unknown]

NARRATIVE: CASE EVENT DATE: 20170113
